FAERS Safety Report 23750536 (Version 1)
Quarter: 2024Q2

REPORT INFORMATION
  Report Type: Spontaneous
  Country: CA (occurrence: CA)
  Receive Date: 20240417
  Receipt Date: 20240417
  Transmission Date: 20240716
  Serious: Yes (Hospitalization, Other)
  Sender: FDA-Public Use
  Company Number: CA-GLAXOSMITHKLINE-CA2024AMR047834

PATIENT

DRUGS (15)
  1. FLUTICASONE PROPIONATE [Suspect]
     Active Substance: FLUTICASONE PROPIONATE
     Indication: Product used for unknown indication
     Dosage: UNK
  2. ADVAIR HFA [Suspect]
     Active Substance: FLUTICASONE PROPIONATE\SALMETEROL XINAFOATE
     Indication: Product used for unknown indication
     Dosage: UNK
  3. MEPOLIZUMAB [Suspect]
     Active Substance: MEPOLIZUMAB
     Indication: Product used for unknown indication
     Dosage: 100 MG, MO
  4. MEPOLIZUMAB [Suspect]
     Active Substance: MEPOLIZUMAB
     Dosage: 100 MG, MO
  5. VENTOLIN [Suspect]
     Active Substance: ALBUTEROL SULFATE
     Indication: Product used for unknown indication
     Dosage: UNK
  6. ATROVENT [Suspect]
     Active Substance: IPRATROPIUM BROMIDE
     Indication: Product used for unknown indication
     Dosage: 4 DF, QD
  7. ASPIRIN [Suspect]
     Active Substance: ASPIRIN
     Indication: Product used for unknown indication
     Dosage: UNK
  8. BACTRIM [Suspect]
     Active Substance: SULFAMETHOXAZOLE\TRIMETHOPRIM
     Indication: Product used for unknown indication
     Dosage: UNK
  9. MONTELUKAST SODIUM [Suspect]
     Active Substance: MONTELUKAST SODIUM
     Indication: Product used for unknown indication
     Dosage: 10 MG
  10. QVAR [Suspect]
     Active Substance: BECLOMETHASONE DIPROPIONATE
     Indication: Product used for unknown indication
     Dosage: UNK
  11. SPIRIVA [Suspect]
     Active Substance: TIOTROPIUM BROMIDE MONOHYDRATE
     Indication: Product used for unknown indication
     Dosage: UNK
  12. SYMBICORT [Suspect]
     Active Substance: BUDESONIDE\FORMOTEROL FUMARATE DIHYDRATE
     Indication: Product used for unknown indication
     Dosage: UNK,POWDER
  13. TERBUTALINE SULFATE [Suspect]
     Active Substance: TERBUTALINE SULFATE
     Indication: Product used for unknown indication
     Dosage: UNK
  14. ZENHALE [Suspect]
     Active Substance: FORMOTEROL FUMARATE\MOMETASONE FUROATE
     Indication: Product used for unknown indication
     Dosage: UNK
  15. QUETIAPINE FUMARATE [Concomitant]
     Active Substance: QUETIAPINE FUMARATE
     Indication: Product used for unknown indication
     Dosage: UNK

REACTIONS (31)
  - Decreased activity [Not Recovered/Not Resolved]
  - Asthma [Not Recovered/Not Resolved]
  - Bacterial infection [Not Recovered/Not Resolved]
  - Cough [Not Recovered/Not Resolved]
  - Dizziness [Not Recovered/Not Resolved]
  - Drug ineffective [Unknown]
  - Dyspnoea [Not Recovered/Not Resolved]
  - Dyspnoea exertional [Not Recovered/Not Resolved]
  - Eosinophil count abnormal [Not Recovered/Not Resolved]
  - Feeding disorder [Not Recovered/Not Resolved]
  - Full blood count abnormal [Not Recovered/Not Resolved]
  - Fungal infection [Not Recovered/Not Resolved]
  - Infection [Not Recovered/Not Resolved]
  - Influenza [Not Recovered/Not Resolved]
  - Loss of personal independence in daily activities [Not Recovered/Not Resolved]
  - Malaise [Not Recovered/Not Resolved]
  - Middle insomnia [Not Recovered/Not Resolved]
  - Musculoskeletal chest pain [Not Recovered/Not Resolved]
  - Nasal discharge discolouration [Not Recovered/Not Resolved]
  - Nasopharyngitis [Not Recovered/Not Resolved]
  - Pain [Not Recovered/Not Resolved]
  - Pneumonia [Not Recovered/Not Resolved]
  - Product administration error [Unknown]
  - Rales [Not Recovered/Not Resolved]
  - Sleep disorder due to a general medical condition [Not Recovered/Not Resolved]
  - Therapeutic response decreased [Unknown]
  - Urinary tract infection [Not Recovered/Not Resolved]
  - Vertigo [Not Recovered/Not Resolved]
  - Viral infection [Not Recovered/Not Resolved]
  - Vomiting [Not Recovered/Not Resolved]
  - Wheezing [Not Recovered/Not Resolved]
